FAERS Safety Report 7053214-9 (Version None)
Quarter: 2010Q4

REPORT INFORMATION
  Report Type: 
  Country: None (occurrence: None)
  Receive Date: 20101020
  Receipt Date: 20101006
  Transmission Date: 20110411
  Serious: Yes (Hospitalization, Other)
  Sender: FDA-Public Use
  Company Number: US-ELI_LILLY_AND_COMPANY-US201007006857

PATIENT
  Sex: Female
  Weight: 57.143 kg

DRUGS (12)
  1. FORTEO [Suspect]
     Indication: OSTEOPOROSIS
     Dosage: 20 UG, DAILY (1/D)
     Route: 065
  2. FORTEO [Suspect]
     Dosage: 20 UG, DAILY (1/D)
  3. ANTIHYPERTENSIVE AGENT [Concomitant]
     Dosage: UNK, UNKNOWN
     Route: 065
  4. NORVASC [Concomitant]
  5. ASPIRIN [Concomitant]
  6. QUESTRAN [Concomitant]
  7. SPIRIVA [Concomitant]
  8. LORTAB [Concomitant]
  9. ACIPHEX [Concomitant]
  10. ASMANEX TWISTHALER [Concomitant]
  11. ASMANEX TWISTHALER [Concomitant]
  12. CALTRATE [Concomitant]

REACTIONS (8)
  - ACUTE RESPIRATORY FAILURE [None]
  - ARTHROPOD BITE [None]
  - CHRONIC OBSTRUCTIVE PULMONARY DISEASE [None]
  - CYSTITIS [None]
  - LEFT VENTRICULAR DYSFUNCTION [None]
  - MYOCARDIAL INFARCTION [None]
  - PNEUMONIA KLEBSIELLA [None]
  - STRESS CARDIOMYOPATHY [None]
